FAERS Safety Report 14201783 (Version 3)
Quarter: 2017Q4

REPORT INFORMATION
  Report Type: Spontaneous
  Country: US (occurrence: US)
  Receive Date: 20171117
  Receipt Date: 20171229
  Transmission Date: 20180321
  Serious: Yes (Other)
  Sender: FDA-Public Use
  Company Number: US-OMEROS CORPORATION-2017OME00018

PATIENT
  Age: 52 Year
  Sex: Male

DRUGS (16)
  1. GABAPENTIN. [Concomitant]
     Active Substance: GABAPENTIN
     Dosage: 600 MG, 3X/DAY
     Route: 048
  2. BETADINE [Concomitant]
     Active Substance: POVIDONE-IODINE
     Dosage: UNK
     Dates: start: 20170919, end: 20170919
  3. LISINOPRIL. [Concomitant]
     Active Substance: LISINOPRIL
     Dosage: 30 MG, 1X/DAY
     Route: 048
  4. OMIDRIA [Suspect]
     Active Substance: KETOROLAC\PHENYLEPHRINE
     Indication: CATARACT OPERATION
     Dosage: UNK UNK, ONCE, LEFT EYE
     Route: 031
     Dates: start: 20170919, end: 20170919
  5. OMIDRIA [Suspect]
     Active Substance: KETOROLAC\PHENYLEPHRINE
     Indication: INTRAOCULAR LENS IMPLANT
  6. KETOROLAC [Concomitant]
     Active Substance: KETOROLAC\KETOROLAC TROMETHAMINE
     Dosage: 1 DROP, 4X/DAY, LEFT EYE
     Dates: start: 20170916
  7. HUMALOG KWIKPEN [Concomitant]
     Active Substance: INSULIN LISPRO
     Dosage: 100 U, 2X/DAY
     Route: 058
  8. INVOKAMET [Concomitant]
     Active Substance: CANAGLIFLOZIN\METFORMIN HYDROCHLORIDE
     Dosage: 1 CAPSULES, 2X/DAY
     Route: 048
  9. ALCON BSS [Concomitant]
     Dosage: UNK
     Dates: start: 20170919, end: 20170919
  10. DUOVISC [Concomitant]
     Active Substance: CHONDROITIN SULFATE A\HYALURONATE SODIUM
     Dosage: UNK
     Dates: start: 20170919, end: 20170919
  11. LIPITOR [Concomitant]
     Active Substance: ATORVASTATIN CALCIUM
     Dosage: 40 MG, 1X/DAY
     Route: 048
  12. BESIVANCE [Concomitant]
     Active Substance: BESIFLOXACIN
     Dosage: 1 DROP, 4X/DAY, BOTH EYES
     Dates: start: 20170916
  13. PRESERVATIVE FREE INTRAOCULAR LIDOCAINE [Concomitant]
     Dosage: 4 ML, ONCE
     Dates: start: 20170919, end: 20170919
  14. VISCOAT [Concomitant]
     Route: 031
  15. TOUJEO [Concomitant]
     Active Substance: INSULIN GLARGINE
     Dosage: 40 U, 1X/DAY NIGHTLY
     Route: 058
  16. STERILE SALINE [Concomitant]
     Dosage: UNK
     Dates: start: 20170919, end: 20170919

REACTIONS (3)
  - Corneal oedema [Recovered/Resolved]
  - Toxic anterior segment syndrome [Unknown]
  - Keratitis [Recovering/Resolving]

NARRATIVE: CASE EVENT DATE: 2017
